FAERS Safety Report 5216185-3 (Version None)
Quarter: 2007Q1

REPORT INFORMATION
  Report Type: 
  Country: None (occurrence: None)
  Receive Date: 20070118
  Receipt Date: 20070104
  Transmission Date: 20070707
  Serious: Yes (Other)
  Sender: FDA-Public Use
  Company Number: 2006US-03275

PATIENT
  Age: 18 Year
  Sex: Male

DRUGS (2)
  1. ISOTRETINOIN [Suspect]
     Indication: ACNE
     Dosage: 40 MG, QD,
     Dates: start: 20060201, end: 20060301
  2. ZOLOFT [Suspect]

REACTIONS (4)
  - AMNESIA [None]
  - DRUG INTERACTION [None]
  - HEAD INJURY [None]
  - SURGERY [None]
